FAERS Safety Report 6772568-1 (Version None)
Quarter: 2010Q2

REPORT INFORMATION
  Report Type: 
  Country: None (occurrence: None)
  Receive Date: 20100616
  Receipt Date: 20090622
  Transmission Date: 20101027
  Serious: No
  Sender: FDA-Public Use
  Company Number: US-ASTRAZENECA-2009UW16734

PATIENT
  Age: 86 Year
  Sex: Female
  Weight: 56.7 kg

DRUGS (3)
  1. PULMICORT RESPULES [Suspect]
     Indication: PNEUMONIA
     Route: 055
     Dates: start: 20080101
  2. ASPIRIN [Concomitant]
  3. COREG [Concomitant]
     Indication: BLOOD PRESSURE

REACTIONS (3)
  - DIZZINESS [None]
  - FATIGUE [None]
  - MALAISE [None]
